FAERS Safety Report 5190532-3 (Version None)
Quarter: 2006Q4

REPORT INFORMATION
  Report Type: 
  Country: None (occurrence: None)
  Receive Date: 20061222
  Receipt Date: 20061116
  Transmission Date: 20070319
  Serious: Yes (Other)
  Sender: FDA-Public Use
  Company Number: DE-GLAXOSMITHKLINE-B0446831A

PATIENT
  Age: 63 Year
  Sex: Female

DRUGS (5)
  1. DR. BEST ZAHNWEISS [Suspect]
     Indication: DENTAL CLEANING
     Dates: start: 20061001
  2. HOMEOPATHY [Concomitant]
     Route: 065
  3. SELENIUM + ZINC [Concomitant]
     Route: 065
  4. UNKNOWN [Concomitant]
     Route: 065
  5. UNKNOWN [Concomitant]
     Route: 065

REACTIONS (12)
  - DYSPHAGIA [None]
  - EATING DISORDER [None]
  - HEADACHE [None]
  - HYPERSENSITIVITY [None]
  - ILL-DEFINED DISORDER [None]
  - LIP BLISTER [None]
  - MALAISE [None]
  - MIGRAINE [None]
  - NAUSEA [None]
  - ORAL DISCOMFORT [None]
  - ORAL MUCOSAL BLISTERING [None]
  - SPEECH DISORDER [None]
